FAERS Safety Report 25352113 (Version 4)
Quarter: 2025Q4

REPORT INFORMATION
  Report Type: Spontaneous
  Country: EU (occurrence: EU)
  Receive Date: 20250523
  Receipt Date: 20251112
  Transmission Date: 20260118
  Serious: Yes (Hospitalization)
  Sender: AUROBINDO
  Company Number: EU-ROCHE-10000268226

PATIENT
  Age: 52 Year
  Sex: Female
  Weight: 110 kg

DRUGS (19)
  1. CARBOPLATIN [Suspect]
     Active Substance: CARBOPLATIN
     Indication: Breast cancer
     Dosage: 750 MILLIGRAM(SHE RECEIVED HER MOST RECENT DOSE OF DRUG ON 07-APR-2025CUMULATIVE DOSE IS 1500 MG)
     Route: 042
     Dates: start: 20250317
  2. CARBOPLATIN [Suspect]
     Active Substance: CARBOPLATIN
     Indication: Triple negative breast cancer
  3. ATEZOLIZUMAB [Suspect]
     Active Substance: ATEZOLIZUMAB
     Indication: Breast cancer
     Dosage: 1200 MILLIGRAM(SHE RECEIVED HER MOST RECENT DOSE OF DRUG ON 07-APR-2025CUMULATIVE DOSE IS 2400 MG)
     Route: 042
     Dates: start: 20250317
  4. ATEZOLIZUMAB [Suspect]
     Active Substance: ATEZOLIZUMAB
     Indication: Triple negative breast cancer
  5. PACLITAXEL [Suspect]
     Active Substance: PACLITAXEL
     Indication: Breast cancer
     Dosage: 285 MILLIGRAM(SHE RECEIVED HER MOST RECENT DOSE OF DRUG ON 07-APR-2025CUMULATIVE DOSE IS 940 MG)
     Route: 042
     Dates: start: 20250317
  6. PACLITAXEL [Suspect]
     Active Substance: PACLITAXEL
     Indication: Triple negative breast cancer
  7. TIRAGOLUMAB [Suspect]
     Active Substance: TIRAGOLUMAB
     Indication: Breast cancer
     Dosage: 600 MILLIGRAM(SHE RECEIVED HER MOST RECENT DOSE OF DRUG ON 07-APR-2025CUMULATIVE DOSE IS 1200 MG)
     Route: 042
     Dates: start: 20250317
  8. TIRAGOLUMAB [Suspect]
     Active Substance: TIRAGOLUMAB
     Indication: Triple negative breast cancer
  9. BRINTELLIX [Concomitant]
     Active Substance: VORTIOXETINE HYDROBROMIDE
     Indication: Anxiety
     Dosage: 20 MILLIGRAM, ONCE A DAY
     Route: 048
  10. BETAMETHASONE DIPROPIONATE [Concomitant]
     Active Substance: BETAMETHASONE DIPROPIONATE
     Indication: Rash
     Dosage: UNK, ONCE A DAY(~DAILY DOSE: 1)
     Route: 065
     Dates: start: 20250331
  11. PROPRANOLOL [Concomitant]
     Active Substance: PROPRANOLOL HYDROCHLORIDE
     Indication: Hypertension
     Dosage: 160 MILLIGRAM, ONCE A DAY
     Route: 048
  12. OXAZEPAM [Concomitant]
     Active Substance: OXAZEPAM
     Indication: Product used for unknown indication
     Dosage: 10 MILLIGRAM, ONCE A DAY
     Route: 065
  13. ACETAMINOPHEN [Concomitant]
     Active Substance: ACETAMINOPHEN
     Indication: Product used for unknown indication
     Dosage: UNK [IF PAIN]
     Route: 065
  14. PREDNISONE [Concomitant]
     Active Substance: PREDNISONE
     Indication: Product used for unknown indication
     Dosage: 20 MILLIGRAM
     Route: 065
  15. Spasfon [Concomitant]
     Indication: Product used for unknown indication
     Dosage: 80 MILLIGRAM, 3 TIMES A DAY(2 TABLETS EVERY 8 HOURS)
     Route: 065
  16. Akynzeo [Concomitant]
     Indication: Product used for unknown indication
     Dosage: 1 DOSAGE FORM (1 TABLET BEFORE D1)
     Route: 065
  17. RACECADOTRIL [Concomitant]
     Active Substance: RACECADOTRIL
     Indication: Product used for unknown indication
     Dosage: 1 DOSAGE FORM, 3 TIMES A DAY(UNTIL BOWEL MOVEMENTS REGULAR, 30 MINUTES BEFORE FOOD.)
     Route: 065
  18. LOPERAMIDE [Concomitant]
     Active Substance: LOPERAMIDE
     Indication: Product used for unknown indication
     Dosage: 2 DOSAGE FORM (2 CAPSULES/DAY + 1 CAPSULE AFTER EACH LIQUID STOOL, MAXIMUM OF 6 CAPSULES/DAY.)
     Route: 065
  19. LEVOCETIRIZINE [Concomitant]
     Active Substance: LEVOCETIRIZINE
     Indication: Product used for unknown indication
     Dosage: 5 MILLIGRAM (1 TABLET IN THE EVENING)
     Route: 065
     Dates: start: 20250331

REACTIONS (1)
  - Troponin increased [Recovered/Resolved]

NARRATIVE: CASE EVENT DATE: 20250414
